FAERS Safety Report 23381100 (Version 1)
Quarter: 2024Q1

REPORT INFORMATION
  Report Type: Spontaneous
  Country: US (occurrence: US)
  Receive Date: 20240109
  Receipt Date: 20240109
  Transmission Date: 20240410
  Serious: No
  Sender: FDA-Public Use
  Company Number: US-AUROBINDO-AUR-APL-2023-059666

PATIENT

DRUGS (1)
  1. AMPHETAMINE\DEXTROAMPHETAMINE [Suspect]
     Active Substance: AMPHETAMINE\DEXTROAMPHETAMINE
     Indication: Hypersomnia
     Dosage: 20 MILLIGRAM
     Route: 065

REACTIONS (14)
  - Feeling abnormal [Unknown]
  - Fatigue [Unknown]
  - Brain fog [Unknown]
  - Cognitive disorder [Unknown]
  - Crying [Unknown]
  - Irritability [Unknown]
  - Emotional disorder [Unknown]
  - Agitation [Unknown]
  - Condition aggravated [Unknown]
  - Anger [Unknown]
  - Depression [Unknown]
  - Apathy [Unknown]
  - Drug ineffective [Unknown]
  - Product substitution issue [Unknown]
